FAERS Safety Report 7674195-0 (Version None)
Quarter: 2011Q3

REPORT INFORMATION
  Report Type: 
  Country: None (occurrence: None)
  Receive Date: 20110808
  Receipt Date: 20110725
  Transmission Date: 20111222
  Serious: Yes (Other)
  Sender: FDA-Public Use
  Company Number: 2009S1001193

PATIENT
  Age: 66 Year
  Sex: Female
  Weight: 61.2356 kg

DRUGS (4)
  1. PHOSPHOSODA FLAVOR NOT SPECIFIED [Suspect]
     Indication: COLONOSCOPY
     Dosage: PO
     Route: 048
     Dates: start: 20030701, end: 20030701
  2. DIOVAN [Concomitant]
  3. ATENOLOL [Concomitant]
  4. THYROID HORMONES [Concomitant]

REACTIONS (17)
  - PAIN IN EXTREMITY [None]
  - WEIGHT INCREASED [None]
  - FATIGUE [None]
  - HEADACHE [None]
  - MUSCULOSKELETAL STIFFNESS [None]
  - CHILLS [None]
  - RENAL FAILURE ACUTE [None]
  - DECREASED APPETITE [None]
  - FLUID RETENTION [None]
  - DYSGEUSIA [None]
  - LIP DRY [None]
  - ABDOMINAL DISTENSION [None]
  - RENAL CORTICAL NECROSIS [None]
  - RENAL TUBULAR NECROSIS [None]
  - SENSATION OF HEAVINESS [None]
  - ORAL DISCOMFORT [None]
  - INSOMNIA [None]
